FAERS Safety Report 12874267 (Version 1)
Quarter: 2016Q4

REPORT INFORMATION
  Report Type: Spontaneous
  Country: None (occurrence: GB)
  Receive Date: 20161021
  Receipt Date: 20161021
  Transmission Date: 20170207
  Serious: Yes (Other)
  Sender: FDA-Public Use
  Company Number: GB-MEDAC PHARMA, INC.-1058636

PATIENT
  Sex: Female

DRUGS (2)
  1. METHOTREXATE SODIUM. [Suspect]
     Active Substance: METHOTREXATE SODIUM
     Indication: RHEUMATOID ARTHRITIS
  2. ENBREL [Suspect]
     Active Substance: ETANERCEPT

REACTIONS (6)
  - Oral herpes [Unknown]
  - Lower respiratory tract infection [Unknown]
  - Nasal dryness [Unknown]
  - Furuncle [Unknown]
  - Rhinitis [Unknown]
  - Sinusitis [Unknown]
